FAERS Safety Report 6537279-6 (Version None)
Quarter: 2010Q1

REPORT INFORMATION
  Report Type: 
  Country: None (occurrence: None)
  Receive Date: 20100110
  Receipt Date: 20100104
  Transmission Date: 20100710
  Serious: Yes (Other)
  Sender: FDA-Public Use
  Company Number: A0812110A

PATIENT
  Age: 54 Year
  Sex: Female

DRUGS (1)
  1. UREA PEROXIDE [Suspect]
     Indication: CERUMEN REMOVAL
     Dosage: AURAL
     Route: 001

REACTIONS (2)
  - DEAFNESS TRANSITORY [None]
  - EAR DISCOMFORT [None]
